FAERS Safety Report 4345755-X (Version None)
Quarter: 2004Q2

REPORT INFORMATION
  Report Type: 
  Country: None (occurrence: None)
  Receive Date: 20040421
  Receipt Date: 20040326
  Transmission Date: 20050107
  Serious: Yes (Hospitalization)
  Sender: FDA-Public Use
  Company Number: 2004CG00654

PATIENT
  Age: 53 Year
  Sex: Male

DRUGS (5)
  1. IRESSA [Suspect]
     Indication: LUNG NEOPLASM MALIGNANT
     Dosage: 250 MG QD PO
     Route: 048
     Dates: start: 20040212, end: 20040319
  2. NOCTRAN 10 [Concomitant]
  3. SOLUPRED [Concomitant]
  4. OMEPRAZOLE [Concomitant]
  5. ACETAMINOPHEN [Concomitant]

REACTIONS (5)
  - DERMATITIS ACNEIFORM [None]
  - FACE OEDEMA [None]
  - TRISMUS [None]
  - VISION BLURRED [None]
  - VISUAL DISTURBANCE [None]
